APPROVED DRUG PRODUCT: SODIUM CHLORIDE 0.9% IN PLASTIC CONTAINER
Active Ingredient: SODIUM CHLORIDE
Strength: 45MG/5ML (9MG/ML)
Dosage Form/Route: SOLUTION;INJECTION
Application: N019217 | Product #002
Applicant: ICU MEDICAL INC
Approved: Nov 18, 1998 | RLD: Yes | RS: No | Type: DISCN